FAERS Safety Report 11933693 (Version 1)
Quarter: 2016Q1

REPORT INFORMATION
  Report Type: Spontaneous
  Country: US (occurrence: US)
  Receive Date: 20160121
  Receipt Date: 20160121
  Transmission Date: 20160526
  Serious: No
  Sender: FDA-Public Use
  Company Number: US-BAYER-2016-012191

PATIENT
  Age: 66 Year
  Sex: Male
  Weight: 68.27 kg

DRUGS (1)
  1. MIRALAX [Suspect]
     Active Substance: POLYETHYLENE GLYCOL 3350
     Indication: CONSTIPATION PROPHYLAXIS
     Dosage: 1 DF, PRN
     Route: 048
     Dates: start: 20160117, end: 20160118

REACTIONS (6)
  - Diarrhoea [None]
  - Abdominal pain upper [None]
  - Abdominal discomfort [None]
  - Drug effect incomplete [None]
  - Feeling abnormal [None]
  - Product use issue [None]

NARRATIVE: CASE EVENT DATE: 20160117
